FAERS Safety Report 19953055 (Version 1)
Quarter: 2021Q4

REPORT INFORMATION
  Report Type: Spontaneous
  Country: TR (occurrence: TR)
  Receive Date: 20211014
  Receipt Date: 20211014
  Transmission Date: 20220303
  Serious: Yes (Hospitalization, Disabling, Other)
  Sender: FDA-Public Use
  Company Number: TR-ALS-000420

PATIENT
  Age: 17 Year
  Sex: Male

DRUGS (1)
  1. METFORMIN [Suspect]
     Active Substance: METFORMIN HYDROCHLORIDE
     Indication: Product use in unapproved indication
     Dosage: 500 MG, THE PATIENT HAD TAKEN MANY OF THESE PILLS
     Route: 065

REACTIONS (21)
  - Diabetic ketoacidosis [Unknown]
  - Cardiac arrest [Unknown]
  - Disease recurrence [Unknown]
  - Hyperkalaemia [Unknown]
  - Metabolic acidosis [Unknown]
  - Cyanosis [Unknown]
  - Ecchymosis [Unknown]
  - Toxicity to various agents [Unknown]
  - Leg amputation [Unknown]
  - Rhabdomyolysis [Unknown]
  - Product use in unapproved indication [Unknown]
  - Product use issue [Unknown]
  - Coagulopathy [Unknown]
  - Multiple organ dysfunction syndrome [Unknown]
  - Thrombocytopenia [Unknown]
  - Endotracheal intubation [Unknown]
  - Resuscitation [Unknown]
  - Diabetic ketoacidotic hyperglycaemic coma [Unknown]
  - Intentional product misuse [Unknown]
  - Poor peripheral circulation [Unknown]
  - Femoral pulse abnormal [Unknown]
